FAERS Safety Report 9473693 (Version 2)
Quarter: 2013Q3

REPORT INFORMATION
  Report Type: Spontaneous
  Country: US (occurrence: US)
  Receive Date: 20130823
  Receipt Date: 20130823
  Transmission Date: 20140515
  Serious: No
  Sender: FDA-Public Use
  Company Number: US-BRISTOL-MYERS SQUIBB COMPANY-16907149

PATIENT
  Age: 8 Year
  Sex: Male
  Weight: 31.75 kg

DRUGS (7)
  1. SPRYCEL [Suspect]
     Indication: ACUTE LYMPHOCYTIC LEUKAEMIA
     Dosage: SPRYCEL 20 MG TABLET
     Route: 048
     Dates: start: 20120730
  2. MERCAPTOPURINE [Concomitant]
  3. CYTOXAN [Concomitant]
  4. CYTARABINE [Concomitant]
  5. ACYCLOVIR [Concomitant]
  6. BACTRIM [Concomitant]
  7. PHENERGAN [Concomitant]

REACTIONS (4)
  - Vomiting [Unknown]
  - Anxiety [Unknown]
  - Nausea [Unknown]
  - Dysphagia [Unknown]
